FAERS Safety Report 9466371 (Version 1)
Quarter: 2013Q3

REPORT INFORMATION
  Report Type: Spontaneous
  Country: IN (occurrence: IN)
  Receive Date: 20130820
  Receipt Date: 20130820
  Transmission Date: 20140515
  Serious: Yes (Other)
  Sender: FDA-Public Use
  Company Number: IN-ASTRAZENECA-2013SE62448

PATIENT
  Age: 24 Year
  Sex: Male
  Weight: 70 kg

DRUGS (2)
  1. BUPIVACAINE [Suspect]
     Indication: LOCAL ANAESTHESIA
     Dosage: 50 MG INJECTED SLOWLY OVER 5 MIN
     Route: 053
  2. LIDOCAINE [Suspect]
     Indication: LOCAL ANAESTHESIA
     Dosage: 200 MG INJECTED SLOWLY OVER 5 MIN
     Route: 053

REACTIONS (1)
  - Autonomic nervous system imbalance [Recovered/Resolved]
